FAERS Safety Report 5072575-3 (Version None)
Quarter: 2006Q3

REPORT INFORMATION
  Report Type: 
  Country: None (occurrence: None)
  Receive Date: 20060807
  Receipt Date: 20060113
  Transmission Date: 20061208
  Serious: Yes (Hospitalization)
  Sender: FDA-Public Use
  Company Number: US-ROCHE-432352

PATIENT
  Age: 17 Year
  Sex: Female
  Weight: 72.6 kg

DRUGS (3)
  1. ACCUTANE [Suspect]
     Indication: ACNE
     Route: 048
     Dates: start: 19980925, end: 19990316
  2. ACCUTANE [Suspect]
     Route: 048
     Dates: start: 19990316, end: 19990405
  3. ORTHO TRI-CYCLEN [Concomitant]
     Dosage: FREQUENCY REPORTED AS DAILY.
     Route: 048
     Dates: start: 19981015

REACTIONS (52)
  - ACNE [None]
  - ALOPECIA [None]
  - ANXIETY [None]
  - APPENDICITIS [None]
  - ASTHENIA [None]
  - BACK PAIN [None]
  - BURNING SENSATION [None]
  - CHAPPED LIPS [None]
  - CHEILITIS [None]
  - COLITIS [None]
  - CONSTIPATION [None]
  - CROHN'S DISEASE [None]
  - CRYING [None]
  - DEPRESSED MOOD [None]
  - DEPRESSION [None]
  - DISEASE PROGRESSION [None]
  - DIZZINESS [None]
  - DRUG EXPOSURE DURING PREGNANCY [None]
  - DRY SKIN [None]
  - EAR PAIN [None]
  - FATIGUE [None]
  - GASTRITIS [None]
  - GASTROENTERITIS [None]
  - GASTROOESOPHAGEAL REFLUX DISEASE [None]
  - HAEMORRHOIDS [None]
  - HEADACHE [None]
  - ILEITIS [None]
  - ILEUS PARALYTIC [None]
  - INFLAMMATORY BOWEL DISEASE [None]
  - INSOMNIA [None]
  - INTESTINAL HAEMORRHAGE [None]
  - IRON DEFICIENCY ANAEMIA [None]
  - IRRITABLE BOWEL SYNDROME [None]
  - LIP DRY [None]
  - MALAISE [None]
  - NASAL TURBINATE HYPERTROPHY [None]
  - NECK PAIN [None]
  - NEPHROLITHIASIS [None]
  - OVARIAN CYST [None]
  - PAIN IN EXTREMITY [None]
  - PELVIC PAIN [None]
  - PREGNANCY [None]
  - RHINITIS [None]
  - ROAD TRAFFIC ACCIDENT [None]
  - SERUM FERRITIN DECREASED [None]
  - SINUSITIS [None]
  - SMALL INTESTINAL OBSTRUCTION [None]
  - TINNITUS [None]
  - VERTIGO [None]
  - WEIGHT DECREASED [None]
  - WEIGHT INCREASED [None]
  - XEROSIS [None]
